FAERS Safety Report 24120561 (Version 5)
Quarter: 2024Q4

REPORT INFORMATION
  Report Type: Report from Study
  Country: JP (occurrence: JP)
  Receive Date: 20240722
  Receipt Date: 20241226
  Transmission Date: 20250115
  Serious: Yes (Other)
  Sender: LUNDBECK
  Company Number: JP-SA-2019SA241344

PATIENT

DRUGS (13)
  1. VIGABATRIN [Suspect]
     Active Substance: VIGABATRIN
     Indication: Infantile spasms
     Dosage: 500 MG, BID
     Route: 048
     Dates: start: 20170608, end: 20170626
  2. VIGABATRIN [Suspect]
     Active Substance: VIGABATRIN
     Indication: Infantile spasms
     Dosage: 1000 MG, BID
     Route: 048
     Dates: start: 20170627, end: 20170726
  3. VIGABATRIN [Suspect]
     Active Substance: VIGABATRIN
     Indication: Partial seizures
     Dosage: 1500 MG, BID
     Route: 048
     Dates: start: 20170727, end: 20170907
  4. VIGABATRIN [Suspect]
     Active Substance: VIGABATRIN
     Dosage: 2000 MG, BID
     Route: 048
     Dates: start: 20170908, end: 20171206
  5. VIGABATRIN [Suspect]
     Active Substance: VIGABATRIN
     Dosage: 2500 MG, BID
     Route: 048
     Dates: start: 20171207, end: 20190109
  6. VIGABATRIN [Suspect]
     Active Substance: VIGABATRIN
     Dosage: 2000 MG, BID
     Route: 048
     Dates: start: 20190110, end: 20190403
  7. VIGABATRIN [Suspect]
     Active Substance: VIGABATRIN
     Dosage: 1500 MG, BID
     Route: 048
     Dates: start: 20190404, end: 20190724
  8. VIGABATRIN [Suspect]
     Active Substance: VIGABATRIN
     Dosage: 1000 MG, QD
     Route: 048
     Dates: start: 20190725, end: 20210127
  9. VIGABATRIN [Suspect]
     Active Substance: VIGABATRIN
     Dosage: 500 MG, QD
     Route: 048
     Dates: start: 20210128, end: 20210428
  10. PRANLUKAST [Concomitant]
     Active Substance: PRANLUKAST
     Indication: Product used for unknown indication
     Dosage: 225 MG, QD
     Route: 048
  11. MYSTAN [Concomitant]
     Active Substance: CLOBAZAM
     Indication: Infantile spasms
     Dosage: 10 MG, QD
     Route: 048
  12. FYCOMPA [Concomitant]
     Active Substance: PERAMPANEL
     Indication: Infantile spasms
     Dosage: 4 MG, QD
     Route: 048
  13. LAMICTAL [Concomitant]
     Active Substance: LAMOTRIGINE
     Indication: Infantile spasms
     Dosage: 225 MG, QD
     Route: 048

REACTIONS (4)
  - Drug ineffective [Unknown]
  - Iron deficiency anaemia [Recovered/Resolved]
  - Upper respiratory tract inflammation [Recovered/Resolved]
  - Retinogram abnormal [Recovered/Resolved]

NARRATIVE: CASE EVENT DATE: 20170907
